FAERS Safety Report 16699739 (Version 1)
Quarter: 2019Q3

REPORT INFORMATION
  Report Type: Spontaneous
  Country: US (occurrence: US)
  Receive Date: 20190813
  Receipt Date: 20190813
  Transmission Date: 20191004
  Serious: Yes (Hospitalization)
  Sender: FDA-Public Use
  Company Number: US-NOVOPROD-678318

PATIENT
  Sex: Female

DRUGS (2)
  1. NOVOLOG [Suspect]
     Active Substance: INSULIN ASPART
     Indication: TYPE 2 DIABETES MELLITUS
     Dosage: SLIDING SCALE. USES 3 TIMES A DAY
     Route: 058
  2. TRESIBA [Suspect]
     Active Substance: INSULIN DEGLUDEC
     Indication: TYPE 2 DIABETES MELLITUS
     Dosage: 8-10 UNITS BEFORE BED TIME
     Route: 058

REACTIONS (4)
  - Vertigo [Unknown]
  - Blood glucose increased [Unknown]
  - Nervousness [Unknown]
  - Bone disorder [Unknown]

NARRATIVE: CASE EVENT DATE: 2018
